FAERS Safety Report 8938330 (Version 1)
Quarter: 2012Q4

REPORT INFORMATION
  Report Type: Spontaneous
  Country: US (occurrence: None)
  Receive Date: 20121128
  Receipt Date: 20121128
  Transmission Date: 20130627
  Serious: Yes (Disabling)
  Sender: FDA-Public Use
  Company Number: None

PATIENT

DRUGS (2)
  1. ZYPREXA [Suspect]
  2. LAMICTAL [Suspect]

REACTIONS (4)
  - Reaction to drug excipients [None]
  - Therapy cessation [None]
  - Mania [None]
  - Intervertebral disc protrusion [None]
